FAERS Safety Report 21984800 (Version 7)
Quarter: 2025Q1

REPORT INFORMATION
  Report Type: Spontaneous
  Country: US (occurrence: US)
  Receive Date: 20230213
  Receipt Date: 20250124
  Transmission Date: 20250409
  Serious: Yes (Hospitalization)
  Sender: PFIZER
  Company Number: US-PFIZER INC-PV202300025027

PATIENT
  Age: 51 Year
  Sex: Male

DRUGS (7)
  1. SOMAVERT [Suspect]
     Active Substance: PEGVISOMANT
     Indication: Acromegaly
     Dosage: 20 MG, DAILY
     Dates: start: 2011
  2. SOMAVERT [Suspect]
     Active Substance: PEGVISOMANT
     Dosage: 20 MG, ALTERNATE DAY
     Route: 058
     Dates: start: 2011
  3. SOMAVERT [Suspect]
     Active Substance: PEGVISOMANT
     Dosage: 20 MG, ALTERNATE DAY
     Route: 058
     Dates: start: 2011, end: 20230801
  4. SOMAVERT [Suspect]
     Active Substance: PEGVISOMANT
     Dosage: 20 MG, ALTERNATE DAY
     Route: 058
     Dates: start: 202308, end: 202310
  5. SOMAVERT [Suspect]
     Active Substance: PEGVISOMANT
     Dosage: 20 MG, ALTERNATE DAY
     Route: 058
     Dates: start: 20231102
  6. SANDOSTATIN LAR DEPOT [Concomitant]
     Active Substance: OCTREOTIDE ACETATE
  7. OCTREOTIDE ACETATE [Concomitant]
     Active Substance: OCTREOTIDE ACETATE

REACTIONS (3)
  - Hip arthroplasty [Unknown]
  - Hepatic enzyme increased [Recovering/Resolving]
  - Hepatic steatosis [Unknown]

NARRATIVE: CASE EVENT DATE: 20220101
